FAERS Safety Report 11931278 (Version 3)
Quarter: 2016Q1

REPORT INFORMATION
  Report Type: Spontaneous
  Country: US (occurrence: US)
  Receive Date: 20160120
  Receipt Date: 20160314
  Transmission Date: 20160526
  Serious: Yes (Hospitalization)
  Sender: FDA-Public Use
  Company Number: US-JNJFOC-20160111637

PATIENT
  Age: 50 Year
  Sex: Female
  Weight: 56.7 kg

DRUGS (4)
  1. PHENERGAN [Concomitant]
     Active Substance: PROMETHAZINE HYDROCHLORIDE
     Indication: NAUSEA
     Route: 065
  2. MERCAPTOPURINE. [Concomitant]
     Active Substance: MERCAPTOPURINE
     Indication: CROHN^S DISEASE
     Route: 065
  3. REMICADE [Suspect]
     Active Substance: INFLIXIMAB
     Indication: CROHN^S DISEASE
     Route: 042
     Dates: start: 201506, end: 20151013
  4. ITRACONAZOLE. [Concomitant]
     Active Substance: ITRACONAZOLE
     Dosage: 3 TABLETS IN MORNING AND 3 TABLETS AT NIGHT, TOTAL DOSAGE 600 MG
     Route: 065

REACTIONS (2)
  - Drug ineffective [Unknown]
  - Histoplasmosis [Recovering/Resolving]

NARRATIVE: CASE EVENT DATE: 20151013
